FAERS Safety Report 18765056 (Version 1)
Quarter: 2021Q1

REPORT INFORMATION
  Report Type: Spontaneous
  Country: US (occurrence: US)
  Receive Date: 20210120
  Receipt Date: 20210120
  Transmission Date: 20210419
  Serious: No
  Sender: FDA-Public Use
  Company Number: US-PFIZER INC-2021025225

PATIENT
  Age: 76 Year
  Sex: Male
  Weight: 72.57 kg

DRUGS (2)
  1. MEDROL [Suspect]
     Active Substance: METHYLPREDNISOLONE
     Indication: NECK PAIN
     Dosage: UNK
  2. MEDROL [Suspect]
     Active Substance: METHYLPREDNISOLONE
     Indication: SPONDYLITIS

REACTIONS (3)
  - Off label use [Unknown]
  - Spondylitis [Unknown]
  - Condition aggravated [Unknown]
